FAERS Safety Report 14540709 (Version 1)
Quarter: 2018Q1

REPORT INFORMATION
  Report Type: Spontaneous
  Country: TR (occurrence: TR)
  Receive Date: 20180216
  Receipt Date: 20180216
  Transmission Date: 20180509
  Serious: Yes (Hospitalization, Other)
  Sender: FDA-Public Use
  Company Number: TR-OTSUKA-DJ20080179

PATIENT
  Age: 29 Year
  Sex: Male
  Weight: 66 kg

DRUGS (4)
  1. ABILIFY [Suspect]
     Active Substance: ARIPIPRAZOLE
     Indication: PSYCHOTIC DISORDER
     Dosage: 30 MG, UNK
     Route: 048
     Dates: start: 200608, end: 20071115
  2. CLOZAPINE. [Concomitant]
     Active Substance: CLOZAPINE
     Indication: PSYCHOTIC DISORDER
     Dosage: UNK
     Route: 065
     Dates: start: 1999
  3. CIPRALEX [Concomitant]
     Active Substance: ESCITALOPRAM OXALATE
     Dosage: 5 MG, QD
     Route: 065
     Dates: start: 200704
  4. AURORIX [Concomitant]
     Active Substance: MOCLOBEMIDE
     Indication: DEPRESSION
     Dosage: UNK
     Route: 065
     Dates: start: 1999

REACTIONS (1)
  - Cerebral infarction [Recovered/Resolved]

NARRATIVE: CASE EVENT DATE: 20071115
